FAERS Safety Report 9630536 (Version 1)
Quarter: 2013Q4

REPORT INFORMATION
  Report Type: Report from Study
  Country: US (occurrence: US)
  Receive Date: 20131018
  Receipt Date: 20131018
  Transmission Date: 20140711
  Serious: Yes (Death, Other)
  Sender: FDA-Public Use
  Company Number: US-ROCHE-1288360

PATIENT
  Sex: Male

DRUGS (1)
  1. XELODA [Suspect]
     Indication: PANCREATIC CARCINOMA
     Route: 048
     Dates: start: 20130920

REACTIONS (5)
  - Pneumonia [Fatal]
  - Mucosal ulceration [Unknown]
  - Diarrhoea [Unknown]
  - Vomiting [Unknown]
  - Enzyme abnormality [Unknown]
